FAERS Safety Report 6166705-X (Version None)
Quarter: 2009Q2

REPORT INFORMATION
  Report Type: 
  Country: None (occurrence: None)
  Receive Date: 20090424
  Receipt Date: 20090414
  Transmission Date: 20091009
  Serious: Yes (Other)
  Sender: FDA-Public Use
  Company Number: FR-PFIZER INC-2009178090

PATIENT

DRUGS (2)
  1. CHAMPIX [Suspect]
     Indication: SMOKING CESSATION THERAPY
     Dosage: 1 MG, 2X/DAY
     Dates: start: 20081028, end: 20081118
  2. MODAFINIL [Concomitant]
     Indication: NARCOLEPSY
     Dosage: 100 MG, 2X/DAY
     Dates: start: 20060101

REACTIONS (1)
  - MANIA [None]
